FAERS Safety Report 23144476 (Version 1)
Quarter: 2023Q4

REPORT INFORMATION
  Report Type: Spontaneous
  Country: CN (occurrence: CN)
  Receive Date: 20231103
  Receipt Date: 20231103
  Transmission Date: 20240110
  Serious: Yes (Hospitalization, Other)
  Sender: FDA-Public Use
  Company Number: None

PATIENT
  Age: 57 Year
  Sex: Male
  Weight: 65 kg

DRUGS (8)
  1. CYCLOPHOSPHAMIDE [Suspect]
     Active Substance: CYCLOPHOSPHAMIDE
     Indication: Non-Hodgkin^s lymphoma
     Dosage: 0.2 G, ONE TIME IN ONE DAY, DILUTED WITH 0.9% SODIUM CHLORIDE 250ML
     Route: 041
     Dates: start: 20231010, end: 20231012
  2. CYCLOPHOSPHAMIDE [Suspect]
     Active Substance: CYCLOPHOSPHAMIDE
     Dosage: 0.3 G, ONE TIME IN ONE DAY, DILUTED WITH 0.9% SODIUM CHLORIDE 250ML
     Route: 041
     Dates: start: 20231013, end: 20231014
  3. SODIUM CHLORIDE [Suspect]
     Active Substance: SODIUM CHLORIDE
     Indication: Medication dilution
     Dosage: 0.9% 250 ML, ONE TIME IN ONE DAY, USED TO DILUTE 0.2 G CYCLOPHOSPHAMIDE
     Route: 041
     Dates: start: 20231010, end: 20231012
  4. SODIUM CHLORIDE [Suspect]
     Active Substance: SODIUM CHLORIDE
     Dosage: 0.9% 250 ML, ONE TIME IN ONE DAY, USED TO DILUTE 0.3 G CYCLOPHOSPHAMIDE
     Route: 041
     Dates: start: 20231013, end: 20231014
  5. DEXTROSE [Suspect]
     Active Substance: DEXTROSE\DEXTROSE MONOHYDRATE
     Indication: Medication dilution
     Dosage: 5% 250 ML, ONE TIME IN ONE DAY, USED TO DILUTE 30 MG PIRARUBICIN HYDROCHLORIDE
     Route: 041
     Dates: start: 20231013, end: 20231013
  6. DEXTROSE [Suspect]
     Active Substance: DEXTROSE\DEXTROSE MONOHYDRATE
     Dosage: 5% 250 ML, ONE TIME IN ONE DAY, USED TO DILUTE 48 MG PIRARUBICIN HYDROCHLORIDE
     Route: 041
     Dates: start: 20231014, end: 20231014
  7. PIRARUBICIN HYDROCHLORIDE [Suspect]
     Active Substance: PIRARUBICIN HYDROCHLORIDE
     Indication: Non-Hodgkin^s lymphoma
     Dosage: 30 MG, ONE TIME IN ONE DAY, DILUTED WITH 5% GLUCOSE 250ML
     Route: 041
     Dates: start: 20231013, end: 20231013
  8. PIRARUBICIN HYDROCHLORIDE [Suspect]
     Active Substance: PIRARUBICIN HYDROCHLORIDE
     Dosage: 48 MG, ONE TIME IN ONE DAY, DILUTED WITH 5% GLUCOSE 250ML
     Route: 041
     Dates: start: 20231014, end: 20231014

REACTIONS (1)
  - Myelosuppression [Recovering/Resolving]

NARRATIVE: CASE EVENT DATE: 20231022
